FAERS Safety Report 5232321-7 (Version None)
Quarter: 2007Q1

REPORT INFORMATION
  Report Type: 
  Country: None (occurrence: None)
  Receive Date: 20070207
  Receipt Date: 20070131
  Transmission Date: 20070707
  Serious: Yes (Hospitalization, Other)
  Sender: FDA-Public Use
  Company Number: GB-ELI_LILLY_AND_COMPANY-GB200702000158

PATIENT
  Age: 21 Year
  Sex: Male

DRUGS (10)
  1. ZYPREXA [Suspect]
     Route: 048
     Dates: end: 20061122
  2. ZYPREXA [Interacting]
     Dosage: 10 MG, UNK
     Route: 048
     Dates: start: 20061122, end: 20061224
  3. ABILIFY [Interacting]
     Dosage: 10 MG, UNK
     Route: 048
     Dates: start: 20061201, end: 20061206
  4. ABILIFY [Interacting]
     Dosage: 15 MG, UNK
     Route: 048
     Dates: start: 20061211, end: 20061213
  5. ABILIFY [Interacting]
     Dosage: 5 MG, UNK
     Route: 048
     Dates: start: 20061213, end: 20061220
  6. ABILIFY [Interacting]
     Dates: start: 20061221, end: 20070101
  7. PRIADEL [Interacting]
     Dosage: 1000 MG, UNK
     Route: 048
     Dates: start: 20061122, end: 20070107
  8. DIAZEPAM [Concomitant]
     Dosage: 10 MG, UNK
     Route: 048
     Dates: start: 20061122
  9. DIAZEPAM [Concomitant]
     Dosage: 40 MG, UNK
     Route: 048
     Dates: start: 20070108
  10. VALPROATE SODIUM [Concomitant]
     Dosage: 1000 MG, UNK
     Route: 048
     Dates: start: 20060913

REACTIONS (2)
  - DRUG INTERACTION [None]
  - NEUROLEPTIC MALIGNANT SYNDROME [None]
